FAERS Safety Report 14426394 (Version 1)
Quarter: 2018Q1

REPORT INFORMATION
  Report Type: Spontaneous
  Country: JP (occurrence: JP)
  Receive Date: 20180123
  Receipt Date: 20180123
  Transmission Date: 20180509
  Serious: Yes (Other)
  Sender: FDA-Public Use
  Company Number: JP-PFIZER INC-2018022907

PATIENT
  Sex: Female

DRUGS (3)
  1. SOLANAX [Suspect]
     Active Substance: ALPRAZOLAM
     Indication: HEADACHE
     Dosage: 0.4 MG, UNK (UP TO THREE TIMES A DAY)
     Route: 048
  2. PRALIA [Suspect]
     Active Substance: DENOSUMAB
     Dosage: UNK
  3. PROGRAF [Suspect]
     Active Substance: TACROLIMUS\TACROLIMUS ANHYDROUS
     Indication: RHEUMATOID ARTHRITIS
     Dosage: UNK
     Route: 048

REACTIONS (5)
  - Dizziness [Unknown]
  - Drug effect decreased [Unknown]
  - Pneumonia [Unknown]
  - Gait inability [Unknown]
  - Asthenia [Unknown]
